FAERS Safety Report 11365082 (Version 1)
Quarter: 2015Q3

REPORT INFORMATION
  Report Type: Spontaneous
  Country: FR (occurrence: FR)
  Receive Date: 20150811
  Receipt Date: 20150811
  Transmission Date: 20151125
  Serious: Yes (Other)
  Sender: FDA-Public Use
  Company Number: FR-009507513-1507FRA006280

PATIENT
  Age: 59 Year
  Sex: Male

DRUGS (6)
  1. SOPROL [Concomitant]
     Indication: HYPERTENSION
     Dosage: 1 DF, DAILY
     Dates: start: 20090923
  2. COAPROVEL [Concomitant]
     Active Substance: HYDROCHLOROTHIAZIDE\IRBESARTAN
     Indication: HYPERTENSION
     Dosage: 1 DF, DAILY
     Dates: start: 20050929
  3. VELMETIA [Suspect]
     Active Substance: METFORMIN\SITAGLIPTIN
     Indication: PRODUCT USED FOR UNKNOWN INDICATION
     Dosage: 2 DF, DAILY
     Route: 048
     Dates: start: 20090929, end: 20100220
  4. METFORMIN HYDROCHLORIDE. [Concomitant]
     Active Substance: METFORMIN HYDROCHLORIDE
     Dosage: UNK
  5. LESCOL [Concomitant]
     Active Substance: FLUVASTATIN SODIUM
     Indication: DIABETES MELLITUS
     Dosage: 1 DF, DAILY
     Dates: start: 19991008
  6. PREVISCAN [Concomitant]
     Active Substance: FLUINDIONE
     Dosage: 3 TO 4 DF, DAILY
     Dates: start: 20020217

REACTIONS (1)
  - Hepatitis [Recovered/Resolved]

NARRATIVE: CASE EVENT DATE: 20100216
